FAERS Safety Report 5241284-X (Version None)
Quarter: 2007Q1

REPORT INFORMATION
  Report Type: 
  Country: None (occurrence: None)
  Receive Date: 20070215
  Receipt Date: 20070215
  Transmission Date: 20070707
  Serious: Yes (Other)
  Sender: FDA-Public Use
  Company Number: None

PATIENT
  Age: 38 Year
  Sex: Female
  Weight: 74.3899 kg

DRUGS (1)
  1. ONE A DAY WEIGHT SMART [Suspect]
     Indication: VITAMIN SUPPLEMENTATION
     Dosage: 1 TABLET PER DAY
     Dates: start: 20070206, end: 20070213

REACTIONS (5)
  - CHEST DISCOMFORT [None]
  - DISCOMFORT [None]
  - DYSPNOEA [None]
  - HEART RATE INCREASED [None]
  - PALPITATIONS [None]
